FAERS Safety Report 8395447-5 (Version None)
Quarter: 2012Q2

REPORT INFORMATION
  Report Type: 
  Country: None (occurrence: None)
  Receive Date: 20120530
  Receipt Date: 20120521
  Transmission Date: 20120825
  Serious: Yes (Other)
  Sender: FDA-Public Use
  Company Number: US-ASTRAZENECA-2012SE32768

PATIENT
  Age: 68 Year
  Sex: Male

DRUGS (29)
  1. ASMANEX TWISTHALER [Concomitant]
     Dosage: 220 MCGS TWO PUFFS TWO TIMES A DAY
     Route: 055
     Dates: start: 20120412
  2. ASPIRIN [Concomitant]
     Route: 048
  3. MULTI-VITAMIN [Concomitant]
     Route: 048
  4. BRILINTA [Suspect]
     Route: 048
     Dates: start: 20120521
  5. IMDUR [Concomitant]
     Route: 048
  6. NITROGLYCERIN [Concomitant]
     Route: 060
     Dates: start: 20110627
  7. ZITHROMAX [Concomitant]
     Route: 048
     Dates: start: 20120202
  8. BYSTOLIC [Concomitant]
     Route: 048
  9. CALCIUM [Concomitant]
     Route: 048
  10. FORADIL [Concomitant]
     Route: 055
     Dates: start: 20120412
  11. PREDNISONE TAB [Concomitant]
     Route: 048
  12. PROAIR HFA [Concomitant]
     Dates: start: 20120412
  13. TYLENOL [Concomitant]
     Route: 048
  14. BYSTOLIC [Concomitant]
     Dates: start: 20120521
  15. RANEXA [Concomitant]
     Route: 048
  16. ZOCOR [Concomitant]
     Route: 048
  17. BRILINTA [Suspect]
     Route: 048
     Dates: start: 20120118
  18. CALCIUM [Concomitant]
     Route: 048
  19. COMBIVENT [Concomitant]
     Dosage: 18-103 MCG/ACTUATION TWO PUFFS FOUR TIMES PER DAY
     Route: 055
  20. MUCINEX [Concomitant]
     Dosage: 1-2 TABLETS EVERY 12 HOURS AS NEEDED
     Route: 048
  21. OXYGEN [Concomitant]
     Dates: start: 20120203
  22. TERAZOSIN HCL [Concomitant]
     Route: 048
  23. ALBUTEROL SULFATE SOLUTION [Concomitant]
     Dosage: 0.63 MG/3 ML
     Route: 055
  24. ALBUTEROL SULFATE SOLUTION [Concomitant]
     Dosage: 90 MCGS TWO PUFFS QID PM
     Route: 055
     Dates: start: 20120412
  25. OMEPRAZOLE [Concomitant]
     Route: 048
  26. ZANAFLEX [Concomitant]
     Route: 048
  27. DULERA [Concomitant]
     Dates: start: 20120412
  28. RANEXA [Concomitant]
     Dates: start: 20120521
  29. OXYGEN [Concomitant]
     Dates: start: 20120202

REACTIONS (8)
  - PERIPHERAL VASCULAR DISORDER [None]
  - CHRONIC OBSTRUCTIVE PULMONARY DISEASE [None]
  - CORONARY ARTERY DISEASE [None]
  - CEREBROVASCULAR ACCIDENT [None]
  - BENIGN PROSTATIC HYPERPLASIA [None]
  - ESSENTIAL HYPERTENSION [None]
  - LUNG NEOPLASM MALIGNANT [None]
  - HYPERLIPIDAEMIA [None]
